FAERS Safety Report 14343358 (Version 1)
Quarter: 2018Q1

REPORT INFORMATION
  Report Type: Spontaneous
  Country: US (occurrence: US)
  Receive Date: 20180102
  Receipt Date: 20180102
  Transmission Date: 20180509
  Serious: No
  Sender: FDA-Public Use
  Company Number: US-BIOGEN-2017BI00497957

PATIENT
  Age: 44 Year
  Sex: Female

DRUGS (1)
  1. AVONEX [Suspect]
     Active Substance: INTERFERON BETA-1A
     Indication: MULTIPLE SCLEROSIS
     Route: 030
     Dates: start: 20171117

REACTIONS (4)
  - Anxiety [Recovered/Resolved]
  - Restless legs syndrome [Recovered/Resolved]
  - Influenza like illness [Recovered/Resolved]
  - Drug effect incomplete [Unknown]

NARRATIVE: CASE EVENT DATE: 201711
